FAERS Safety Report 24916146 (Version 1)
Quarter: 2025Q1

REPORT INFORMATION
  Report Type: Spontaneous
  Country: JP (occurrence: JP)
  Receive Date: 20250203
  Receipt Date: 20250203
  Transmission Date: 20250408
  Serious: Yes (Other)
  Sender: SANOFI AVENTIS
  Company Number: JP-ASTELLAS-2016JP011659AA

PATIENT
  Age: 83 Year
  Sex: Female

DRUGS (8)
  1. ZOLPIDEM TARTRATE [Suspect]
     Active Substance: ZOLPIDEM TARTRATE
     Indication: Product used for unknown indication
     Route: 048
     Dates: end: 201111
  2. QUETIAPINE FUMARATE [Suspect]
     Active Substance: QUETIAPINE FUMARATE
     Indication: Depression
     Dosage: 25 MG, QD
     Route: 048
     Dates: end: 201111
  3. LANSOPRAZOLE [Suspect]
     Active Substance: LANSOPRAZOLE
     Indication: Product used for unknown indication
     Route: 048
     Dates: end: 201111
  4. MEMANTINE HYDROCHLORIDE [Suspect]
     Active Substance: MEMANTINE HYDROCHLORIDE
     Indication: Product used for unknown indication
     Route: 065
     Dates: end: 201111
  5. MOSAPRIDE CITRATE [Suspect]
     Active Substance: MOSAPRIDE CITRATE
     Indication: Product used for unknown indication
     Route: 065
     Dates: end: 201111
  6. CANDESARTAN CILEXETIL [Suspect]
     Active Substance: CANDESARTAN CILEXETIL
     Indication: Product used for unknown indication
     Route: 048
     Dates: end: 201111
  7. BENZBROMARONE [Suspect]
     Active Substance: BENZBROMARONE
     Indication: Product used for unknown indication
     Route: 065
     Dates: end: 201111
  8. REFLEX [Concomitant]
     Active Substance: MIRTAZAPINE
     Indication: Product used for unknown indication
     Route: 048
     Dates: end: 201212

REACTIONS (3)
  - Dysphagia [Recovered/Resolved]
  - Withdrawal syndrome [Unknown]
  - Off label use [Unknown]
